FAERS Safety Report 8544136-2 (Version None)
Quarter: 2012Q3

REPORT INFORMATION
  Report Type: 
  Country: None (occurrence: None)
  Receive Date: 20120727
  Receipt Date: 20120719
  Transmission Date: 20120928
  Serious: Yes (Hospitalization, Disabling)
  Sender: FDA-Public Use
  Company Number: CA-JNJFOC-20120710945

PATIENT
  Sex: Female
  Weight: 74.2 kg

DRUGS (7)
  1. REMICADE [Suspect]
     Indication: ANKYLOSING SPONDYLITIS
     Route: 042
  2. CELEBREX [Concomitant]
     Route: 065
  3. VITAMIN D [Concomitant]
     Route: 065
  4. TRIIODOTHYRONINE [Concomitant]
     Route: 065
  5. FOLIC ACID [Concomitant]
     Route: 065
  6. REMICADE [Suspect]
     Route: 042
     Dates: start: 20120719, end: 20120719
  7. METHOTREXATE [Concomitant]
     Route: 065

REACTIONS (3)
  - FALL [None]
  - CERVICAL VERTEBRAL FRACTURE [None]
  - HEAD INJURY [None]
